FAERS Safety Report 9822355 (Version 3)
Quarter: 2014Q2

REPORT INFORMATION
  Report Type: Report from Study
  Country: US (occurrence: US)
  Receive Date: 20140116
  Receipt Date: 20140619
  Transmission Date: 20141212
  Serious: Yes (Hospitalization, Other)
  Sender: FDA-Public Use
  Company Number: US-ALEXION PHARMACEUTICALS INC.-A201304857

PATIENT
  Sex: 0

DRUGS (1)
  1. SOLIRIS [Suspect]
     Indication: HAEMOLYTIC URAEMIC SYNDROME
     Dosage: 600 MG, Q2W
     Route: 042
     Dates: start: 20130708

REACTIONS (4)
  - Neurological symptom [Recovering/Resolving]
  - Dialysis [Not Recovered/Not Resolved]
  - Thrombotic microangiopathy [Unknown]
  - Weight gain poor [Unknown]
